FAERS Safety Report 7461523-4 (Version None)
Quarter: 2011Q2

REPORT INFORMATION
  Report Type: 
  Country: None (occurrence: None)
  Receive Date: 20110506
  Receipt Date: 20110426
  Transmission Date: 20111010
  Serious: Yes (Hospitalization)
  Sender: FDA-Public Use
  Company Number: US-US-EMD SERONO, INC.-7056274

PATIENT
  Sex: Female

DRUGS (5)
  1. OXYBUTYNIN [Concomitant]
     Indication: BLADDER DISORDER
  2. AMINOPYRIDINE [Concomitant]
     Indication: PRODUCT USED FOR UNKNOWN INDICATION
  3. CELLCEPT [Concomitant]
     Indication: MULTIPLE SCLEROSIS
  4. REBIF [Suspect]
     Indication: PRODUCT USED FOR UNKNOWN INDICATION
     Route: 058
     Dates: start: 20030311
  5. SYNTHROID [Concomitant]
     Indication: THYROID DISORDER

REACTIONS (7)
  - COLLAPSE OF LUNG [None]
  - SEPSIS [None]
  - PNEUMONIA [None]
  - FALL [None]
  - INJECTION SITE ERYTHEMA [None]
  - URINARY TRACT INFECTION [None]
  - HAEMOGLOBIN DECREASED [None]
